FAERS Safety Report 4832249-8 (Version None)
Quarter: 2005Q4

REPORT INFORMATION
  Report Type: 
  Country: None (occurrence: None)
  Receive Date: 20051114
  Receipt Date: 20051102
  Transmission Date: 20060501
  Serious: Yes (Other)
  Sender: FDA-Public Use
  Company Number: B0399860A

PATIENT
  Age: 39 Year
  Sex: Male

DRUGS (2)
  1. ADEFOVIR DIPIVOXIL KIT [Suspect]
     Indication: HEPATITIS B
  2. EPIVIR [Suspect]
     Indication: HEPATITIS B

REACTIONS (4)
  - DRUG RESISTANCE [None]
  - HEPATIC FIBROSIS [None]
  - HEPATITIS B [None]
  - VIRAL INFECTION [None]
